FAERS Safety Report 5338322-2 (Version None)
Quarter: 2007Q2

REPORT INFORMATION
  Report Type: 
  Country: None (occurrence: None)
  Receive Date: 20070405
  Receipt Date: 20061113
  Transmission Date: 20071010
  Serious: No
  Sender: FDA-Public Use
  Company Number: US200611002391

PATIENT
  Age: 33 Year
  Sex: Female

DRUGS (3)
  1. CYMBALTA [Suspect]
     Indication: DEPRESSION
     Dosage: 30 MG, ORAL
     Route: 048
     Dates: start: 20060501, end: 20060101
  2. LODINE (LODINE) [Concomitant]
  3. ZITHROMAX [Concomitant]

REACTIONS (2)
  - DIZZINESS [None]
  - MIGRAINE [None]
